FAERS Safety Report 9171308 (Version 1)
Quarter: 2013Q1

REPORT INFORMATION
  Report Type: Spontaneous
  Country: US (occurrence: None)
  Receive Date: 20130318
  Receipt Date: 20130318
  Transmission Date: 20140127
  Serious: No
  Sender: FDA-Public Use
  Company Number: None

PATIENT
  Age: 70 Year
  Sex: Female
  Weight: 58.97 kg

DRUGS (1)
  1. AMIODARONE, 200 MG, SANDOZ [Suspect]
     Indication: ATRIAL FIBRILLATION
     Route: 048
     Dates: start: 20121226, end: 20130315

REACTIONS (6)
  - Asthenia [None]
  - Decreased activity [None]
  - Myalgia [None]
  - Hypothyroidism [None]
  - Fatigue [None]
  - Speech disorder [None]
